FAERS Safety Report 10392981 (Version 1)
Quarter: 2014Q3

REPORT INFORMATION
  Report Type: Other
  Country: DE (occurrence: DE)
  Receive Date: 20140819
  Receipt Date: 20140819
  Transmission Date: 20150326
  Serious: Yes (Hospitalization)
  Sender: FDA-Public Use
  Company Number: DE-ACORDA-ACO_105519_2014

PATIENT
  Age: 59 Year
  Sex: Female

DRUGS (1)
  1. FAMPYRA [Suspect]
     Active Substance: DALFAMPRIDINE
     Indication: MULTIPLE SCLEROSIS
     Dosage: 10 MG, BID
     Route: 048
     Dates: start: 20090101

REACTIONS (3)
  - Fall [Recovered/Resolved]
  - Ligament sprain [Recovered/Resolved with Sequelae]
  - Hip fracture [Recovered/Resolved]

NARRATIVE: CASE EVENT DATE: 201311
